FAERS Safety Report 5067087-7 (Version None)
Quarter: 2006Q3

REPORT INFORMATION
  Report Type: 
  Country: None (occurrence: None)
  Receive Date: 20060727
  Receipt Date: 20060719
  Transmission Date: 20061208
  Serious: No
  Sender: FDA-Public Use
  Company Number: 2676

PATIENT
  Age: 21 Year
  Sex: Male
  Weight: 76.4 kg

DRUGS (2)
  1. AMNESTEEM [Suspect]
     Indication: ACNE CYSTIC
     Dosage: 60 MG, QD, PO X 1 MO, THEN 80 MG, QD, PO X 2 WKS
     Route: 048
     Dates: start: 20060213, end: 20060329
  2. SALINA DIVINORUM [Concomitant]

REACTIONS (4)
  - DEPRESSION [None]
  - DRUG ABUSER [None]
  - HALLUCINATION [None]
  - LIPOMA [None]
